FAERS Safety Report 25950576 (Version 1)
Quarter: 2025Q4

REPORT INFORMATION
  Report Type: Spontaneous
  Country: US (occurrence: US)
  Receive Date: 20251023
  Receipt Date: 20251023
  Transmission Date: 20260118
  Serious: No
  Sender: CATALENT PHARMA SOLUTIONS
  Company Number: US_RAP_Catalent_419_714202545220_1

PATIENT
  Age: 77 Year
  Sex: Male

DRUGS (2)
  1. CETIRIZINE [Suspect]
     Active Substance: CETIRIZINE HYDROCHLORIDE
     Indication: Eye irritation
     Dosage: 1 LIQUID GEL ONCE A DAY
     Route: 065
     Dates: start: 20250701
  2. CETIRIZINE [Suspect]
     Active Substance: CETIRIZINE HYDROCHLORIDE
     Indication: Eye irritation

REACTIONS (2)
  - Diarrhoea [Recovered/Resolved]
  - Product label issue [Unknown]

NARRATIVE: CASE EVENT DATE: 20250701
